FAERS Safety Report 6432017-X (Version None)
Quarter: 2009Q4

REPORT INFORMATION
  Report Type: 
  Country: None (occurrence: None)
  Receive Date: 20091109
  Receipt Date: 20091030
  Transmission Date: 20100525
  Serious: Yes (Hospitalization, Other)
  Sender: FDA-Public Use
  Company Number: GB-JNJFOC-20090808720

PATIENT
  Age: 54 Year
  Sex: Male

DRUGS (8)
  1. REMINYL XR [Suspect]
     Route: 065
  2. REMINYL XR [Suspect]
     Route: 065
  3. REMINYL XR [Suspect]
     Route: 065
  4. REMINYL XR [Suspect]
     Indication: DEMENTIA
     Dosage: STARTED 6 MONTHS AGO
     Route: 065
  5. LEVOTHYROXINE SODIUM [Concomitant]
     Route: 065
  6. RAMIPRIL [Concomitant]
     Route: 065
  7. ASPIRIN [Concomitant]
     Route: 065
  8. TAMSULOSIN [Concomitant]
     Route: 065

REACTIONS (5)
  - BLOOD PRESSURE INCREASED [None]
  - CHANGE OF BOWEL HABIT [None]
  - CONDITION AGGRAVATED [None]
  - DECREASED APPETITE [None]
  - WEIGHT DECREASED [None]
